FAERS Safety Report 23988340 (Version 1)
Quarter: 2024Q2

REPORT INFORMATION
  Report Type: Spontaneous
  Country: US (occurrence: US)
  Receive Date: 20240619
  Receipt Date: 20240619
  Transmission Date: 20240716
  Serious: Yes (Other)
  Sender: FDA-Public Use
  Company Number: US-BIOGEN-2024BI01269445

PATIENT
  Age: 41 Year
  Sex: Female

DRUGS (2)
  1. TYSABRI [Suspect]
     Active Substance: NATALIZUMAB
     Indication: Multiple sclerosis
     Dosage: Q4W FOR 3 MONTHS THEN Q5W
     Route: 050
     Dates: start: 202312, end: 202402
  2. TYSABRI [Suspect]
     Active Substance: NATALIZUMAB
     Dosage: Q4W FOR 3 MONTHS THEN Q5W
     Route: 050
     Dates: start: 202303, end: 20240429

REACTIONS (2)
  - Non-alcoholic steatohepatitis [Unknown]
  - Prescribed underdose [Unknown]
